FAERS Safety Report 6145795-4 (Version None)
Quarter: 2009Q2

REPORT INFORMATION
  Report Type: 
  Country: None (occurrence: None)
  Receive Date: 20090407
  Receipt Date: 20090331
  Transmission Date: 20091009
  Serious: Yes (Hospitalization)
  Sender: FDA-Public Use
  Company Number: US-ELI_LILLY_AND_COMPANY-US200904000159

PATIENT
  Sex: Female

DRUGS (6)
  1. BYETTA [Suspect]
     Indication: TYPE 2 DIABETES MELLITUS
     Dosage: 10 UG, 2/D
     Route: 058
     Dates: start: 20060101
  2. GLUCOPHAGE [Concomitant]
     Dosage: 500 MG, UNKNOWN
     Dates: end: 20090101
  3. GLUCOPHAGE [Concomitant]
     Dosage: 500 MG, UNKNOWN
     Dates: start: 20090101, end: 20090201
  4. GLUCOPHAGE [Concomitant]
     Dosage: 1000 MG, EACH MORNING
     Dates: start: 20090201
  5. GLUCOPHAGE [Concomitant]
     Dosage: 1000 MG, EACH EVENING
     Dates: start: 20090201
  6. ACTOS [Concomitant]
     Dosage: UNK, UNKNOWN

REACTIONS (4)
  - ARTHRALGIA [None]
  - BLOOD GLUCOSE INCREASED [None]
  - GLYCOSYLATED HAEMOGLOBIN INCREASED [None]
  - STRESS [None]
